FAERS Safety Report 16468756 (Version 6)
Quarter: 2020Q1

REPORT INFORMATION
  Report Type: Report from Study
  Country: BE (occurrence: BE)
  Receive Date: 20190624
  Receipt Date: 20200206
  Transmission Date: 20200409
  Serious: Yes (Other)
  Sender: FDA-Public Use
  Company Number: BE-PFIZER INC-2019261465

PATIENT
  Age: 63 Year
  Sex: Female
  Weight: 58 kg

DRUGS (8)
  1. IRINOTECAN HCL [Suspect]
     Active Substance: IRINOTECAN HYDROCHLORIDE
     Indication: COLORECTAL CANCER METASTATIC
     Dosage: UNK
     Route: 042
     Dates: start: 20190131
  2. BEVACIZUMAB. [Suspect]
     Active Substance: BEVACIZUMAB
     Indication: COLORECTAL CANCER METASTATIC
     Dosage: 1 UNK, EVERY TWO WEEKS
     Route: 011
     Dates: start: 20190131
  3. LEUCOVORIN [FOLINIC ACID] [Suspect]
     Active Substance: LEUCOVORIN
     Indication: COLORECTAL CANCER METASTATIC
     Dosage: 1 UNK, EVERY TWO WEEKS
     Route: 042
     Dates: start: 20190131
  4. NYSTATINE [Concomitant]
  5. LITICAN [ALIZAPRIDE HYDROCHLORIDE] [Concomitant]
  6. FLUOROURACIL. [Suspect]
     Active Substance: FLUOROURACIL
     Indication: COLORECTAL CANCER METASTATIC
     Dosage: 1 UNK, EVERY TWO WEEKS
     Route: 042
     Dates: start: 20190131
  7. ESOMEPRAZOLE. [Concomitant]
     Active Substance: ESOMEPRAZOLE MAGNESIUM
  8. FRAXODI [Concomitant]
     Active Substance: NADROPARIN CALCIUM

REACTIONS (34)
  - Anal pruritus [Recovered/Resolved]
  - Nausea [Not Recovered/Not Resolved]
  - Polyneuropathy [Not Recovered/Not Resolved]
  - Muscular weakness [Not Recovered/Not Resolved]
  - Decreased appetite [Not Recovered/Not Resolved]
  - Haematochezia [Recovered/Resolved]
  - Dyspnoea [Not Recovered/Not Resolved]
  - Epistaxis [Recovered/Resolved]
  - Ear infection [Not Recovered/Not Resolved]
  - Dry skin [Recovered/Resolved]
  - Constipation [Recovered/Resolved]
  - Headache [Not Recovered/Not Resolved]
  - Anal pruritus [Recovered/Resolved]
  - Vomiting [Recovered/Resolved]
  - Erythema of eyelid [Recovered/Resolved]
  - Neutropenia [Recovered/Resolved]
  - Pruritus genital [Recovered/Resolved]
  - Abdominal discomfort [Recovered/Resolved]
  - Alopecia [Recovered/Resolved]
  - Paraesthesia [Recovered/Resolved]
  - Nausea [Recovered/Resolved]
  - Diarrhoea [Recovered/Resolved]
  - Erythema [Recovered/Resolved]
  - Eye pain [Recovered/Resolved]
  - Decreased appetite [Recovered/Resolved]
  - Haemoptysis [Recovered/Resolved]
  - Dysphagia [Not Recovered/Not Resolved]
  - Abdominal pain [Recovered/Resolved]
  - Abdominal pain [Not Recovered/Not Resolved]
  - Fatigue [Recovered/Resolved]
  - Dyspepsia [Recovered/Resolved]
  - Mucosal inflammation [Recovered/Resolved]
  - Rhinorrhoea [Not Recovered/Not Resolved]
  - Abdominal distension [Recovered/Resolved]

NARRATIVE: CASE EVENT DATE: 20190131
